FAERS Safety Report 18185595 (Version 2)
Quarter: 2020Q3

REPORT INFORMATION
  Report Type: Report from Study
  Country: None (occurrence: US)
  Receive Date: 20200824
  Receipt Date: 20200929
  Transmission Date: 20201103
  Serious: Yes (Hospitalization, Other)
  Sender: FDA-Public Use
  Company Number: US-ABBVIE-20K-163-3235230-00

PATIENT
  Age: 47 Year
  Sex: Female
  Weight: 99.43 kg

DRUGS (3)
  1. HUMIRA [Suspect]
     Active Substance: ADALIMUMAB
     Indication: COLITIS ULCERATIVE
     Route: 058
  2. HUMIRA [Suspect]
     Active Substance: ADALIMUMAB
     Route: 058
     Dates: start: 2020
  3. HUMIRA [Suspect]
     Active Substance: ADALIMUMAB
     Indication: CROHN^S DISEASE
     Route: 058
     Dates: start: 20200703, end: 2020

REACTIONS (7)
  - Rehabilitation therapy [Unknown]
  - Pain [Not Recovered/Not Resolved]
  - Cartilage atrophy [Recovering/Resolving]
  - Colostomy [Unknown]
  - Gastrointestinal disorder [Recovering/Resolving]
  - Fatigue [Not Recovered/Not Resolved]
  - Knee arthroplasty [Not Recovered/Not Resolved]

NARRATIVE: CASE EVENT DATE: 20200723
